FAERS Safety Report 9018285 (Version 1)
Quarter: 2013Q1

REPORT INFORMATION
  Report Type: Spontaneous
  Country: US (occurrence: None)
  Receive Date: 20130111
  Receipt Date: 20130111
  Transmission Date: 20140127
  Serious: Yes (Hospitalization)
  Sender: FDA-Public Use
  Company Number: None

PATIENT
  Age: 34 Year
  Sex: Male
  Weight: 67.7 kg

DRUGS (1)
  1. PROCHLORPERAZINE [Suspect]
     Indication: NAUSEA
     Dosage: 10 MG QID PO
     Route: 048
     Dates: start: 20121128, end: 20121211

REACTIONS (3)
  - Trismus [None]
  - Dystonia [None]
  - Trismus [None]
